FAERS Safety Report 4574117-5 (Version None)
Quarter: 2005Q1

REPORT INFORMATION
  Report Type: 
  Country: None (occurrence: None)
  Receive Date: 20050208
  Receipt Date: 20041020
  Transmission Date: 20050727
  Serious: No
  Sender: FDA-Public Use
  Company Number: US-GLAXOSMITHKLINE-A0530648A

PATIENT
  Age: 45 Year
  Sex: Male

DRUGS (6)
  1. PAXIL [Suspect]
     Indication: PANIC DISORDER
     Dosage: 20MG PER DAY
     Route: 048
     Dates: start: 20021001
  2. WELLBUTRIN [Suspect]
     Indication: DEPRESSION
     Dosage: 150MG PER DAY
     Route: 048
     Dates: start: 20040901
  3. WELLBUTRIN XL [Concomitant]
  4. ATROVENT [Concomitant]
  5. ADVAIR DISKUS 100/50 [Concomitant]
  6. HYTRIN [Concomitant]

REACTIONS (5)
  - ANOREXIA [None]
  - DEPRESSION [None]
  - MENTAL IMPAIRMENT [None]
  - SOMNOLENCE [None]
  - VISION BLURRED [None]
